FAERS Safety Report 4481145-7 (Version None)
Quarter: 2004Q3

REPORT INFORMATION
  Report Type: 
  Country: None (occurrence: None)
  Receive Date: 20040923
  Receipt Date: 20040604
  Transmission Date: 20050211
  Serious: No
  Sender: FDA-Public Use
  Company Number: USA040567425

PATIENT
  Age: 70 Year
  Sex: Female
  Weight: 53.978 kg

DRUGS (6)
  1. FORTEO [Suspect]
     Indication: OSTEOPOROSIS
     Dosage: 20 UG DAY
     Dates: start: 20040109
  2. COUMADIN [Concomitant]
  3. APO-METOPROLOL (METOPROLOL TARTRATE) [Concomitant]
  4. LANOXIN [Concomitant]
  5. LEVOXYL [Concomitant]
  6. ALDACTONE [Concomitant]

REACTIONS (6)
  - DIZZINESS [None]
  - FEELING ABNORMAL [None]
  - INJECTION SITE HAEMORRHAGE [None]
  - MALAISE [None]
  - TACHYCARDIA [None]
  - VISUAL DISTURBANCE [None]
